FAERS Safety Report 9890259 (Version 2)
Quarter: 2014Q1

REPORT INFORMATION
  Report Type: Spontaneous
  Country: US (occurrence: US)
  Receive Date: 20140212
  Receipt Date: 20140310
  Transmission Date: 20141002
  Serious: Yes (Other)
  Sender: FDA-Public Use
  Company Number: US-AMGEN-USASP2014008883

PATIENT
  Age: 54 Year
  Sex: Male
  Weight: 92.97 kg

DRUGS (1)
  1. XGEVA [Suspect]
     Indication: PROPHYLAXIS
     Dosage: 120 MG, QMO
     Route: 058
     Dates: start: 20131223, end: 20140128

REACTIONS (2)
  - VIth nerve paralysis [Recovering/Resolving]
  - Diplopia [Recovering/Resolving]
